FAERS Safety Report 13309093 (Version 1)
Quarter: 2017Q1

REPORT INFORMATION
  Report Type: Spontaneous
  Country: US (occurrence: US)
  Receive Date: 20170309
  Receipt Date: 20170309
  Transmission Date: 20170428
  Serious: Yes (Other)
  Sender: FDA-Public Use
  Company Number: None

PATIENT
  Age: 40 Year
  Sex: Female
  Weight: 63 kg

DRUGS (2)
  1. MESALAZINA [Concomitant]
     Active Substance: MESALAMINE
  2. KEPPRA [Suspect]
     Active Substance: LEVETIRACETAM
     Indication: PRODUCT USED FOR UNKNOWN INDICATION
     Dosage: ?          QUANTITY:2 TABLET(S);?
     Route: 048

REACTIONS (4)
  - Blood triglycerides increased [None]
  - Lipids increased [None]
  - Colitis ulcerative [None]
  - Blood cholesterol increased [None]

NARRATIVE: CASE EVENT DATE: 20170301
